FAERS Safety Report 7170494-X (Version None)
Quarter: 2010Q4

REPORT INFORMATION
  Report Type: 
  Country: None (occurrence: None)
  Receive Date: 20101123
  Receipt Date: 20100915
  Transmission Date: 20110411
  Serious: No
  Sender: FDA-Public Use
  Company Number: 018960

PATIENT
  Sex: Female

DRUGS (1)
  1. CIMZIA [Suspect]
     Dosage: SUBCUTANEOUS
     Route: 058
     Dates: start: 20090515

REACTIONS (5)
  - CHILLS [None]
  - DIARRHOEA [None]
  - HEADACHE [None]
  - PAIN [None]
  - PYREXIA [None]
